FAERS Safety Report 9271374 (Version 2)
Quarter: 2014Q2

REPORT INFORMATION
  Report Type: Spontaneous
  Country: JP (occurrence: JP)
  Receive Date: 20130506
  Receipt Date: 20140606
  Transmission Date: 20141212
  Serious: Yes (Hospitalization)
  Sender: FDA-Public Use
  Company Number: JP-JNJFOC-20130417285

PATIENT
  Age: 72 Year
  Sex: Male
  Weight: 95 kg

DRUGS (7)
  1. XARELTO [Suspect]
     Indication: CEREBROVASCULAR ACCIDENT PROPHYLAXIS
     Route: 048
     Dates: start: 20130315, end: 20130326
  2. WARFARIN POTASSIUM [Concomitant]
     Indication: PRODUCT USED FOR UNKNOWN INDICATION
     Route: 048
     Dates: start: 20130326
  3. ALLELOCK [Concomitant]
     Indication: URTICARIA
     Route: 048
  4. CELECOXIB [Concomitant]
     Indication: PAIN
     Route: 048
     Dates: start: 20121214
  5. YODEL [Concomitant]
     Indication: CONSTIPATION
     Route: 048
     Dates: start: 20121109
  6. CALBLOCK [Concomitant]
     Indication: HYPERTENSION
     Route: 048
     Dates: start: 20121228
  7. RINDERON [Concomitant]
     Indication: URTICARIA
     Route: 048

REACTIONS (5)
  - Gait disturbance [Recovered/Resolved]
  - Liver disorder [Recovered/Resolved]
  - Arthralgia [Recovered/Resolved]
  - Back pain [Recovered/Resolved]
  - Pain in extremity [Unknown]
